FAERS Safety Report 6155126-1 (Version None)
Quarter: 2009Q2

REPORT INFORMATION
  Report Type: 
  Country: None (occurrence: None)
  Receive Date: 20090415
  Receipt Date: 20070418
  Transmission Date: 20091009
  Serious: Yes (Other)
  Sender: FDA-Public Use
  Company Number: US-ASTRAZENECA-2006UW08243

PATIENT
  Age: 37 Year
  Sex: Female
  Weight: 155.1 kg

DRUGS (22)
  1. SEROQUEL [Suspect]
     Indication: DEPRESSION
     Route: 048
     Dates: end: 20060415
  2. SEROQUEL [Suspect]
     Indication: SUICIDAL IDEATION
     Route: 048
     Dates: end: 20060415
  3. SEROQUEL [Suspect]
     Route: 048
     Dates: start: 20060415
  4. SEROQUEL [Suspect]
     Route: 048
     Dates: start: 20060415
  5. SEROQUEL [Suspect]
     Dosage: 25 TO 400 MG
     Route: 048
     Dates: start: 20050810
  6. SEROQUEL [Suspect]
     Dosage: 25 TO 400 MG
     Route: 048
     Dates: start: 20050810
  7. GEODON [Concomitant]
  8. ZYPREXA [Concomitant]
  9. LAMICTAL [Concomitant]
  10. ASPIRIN [Concomitant]
  11. AVANDAMET [Concomitant]
  12. COREG [Concomitant]
  13. DITROPAN [Concomitant]
  14. MOTRIN [Concomitant]
  15. SINGULAIR [Concomitant]
  16. ZETIA [Concomitant]
  17. ZOCOR [Concomitant]
  18. ATIVAN [Concomitant]
  19. PAXIL [Concomitant]
  20. ACTOS [Concomitant]
  21. DILANTIN [Concomitant]
  22. VALIUM [Concomitant]

REACTIONS (10)
  - ABDOMINAL PAIN UPPER [None]
  - ANGINA UNSTABLE [None]
  - CONJUNCTIVITIS [None]
  - DIABETES MELLITUS [None]
  - DIABETES MELLITUS INADEQUATE CONTROL [None]
  - FIBROMYALGIA [None]
  - NAUSEA [None]
  - OEDEMA PERIPHERAL [None]
  - URINARY TRACT INFECTION [None]
  - VOMITING [None]
